FAERS Safety Report 21005347 (Version 1)
Quarter: 2022Q2

REPORT INFORMATION
  Report Type: Spontaneous
  Country: US (occurrence: None)
  Receive Date: 20220624
  Receipt Date: 20220624
  Transmission Date: 20220721
  Serious: No
  Sender: FDA-Public Use
  Company Number: None

PATIENT
  Age: 69 Year
  Sex: Female
  Weight: 69.85 kg

DRUGS (15)
  1. ZARXIO [Suspect]
     Active Substance: FILGRASTIM-SNDZ
     Indication: Breast cancer female
     Dosage: 480MCG DAILY SUBCUTANEOUS
     Route: 058
  2. CEFUROXIME [Concomitant]
     Active Substance: CEFUROXIME
  3. COLACE [Concomitant]
     Active Substance: DOCUSATE SODIUM
  4. DEXAMETHASONE [Concomitant]
     Active Substance: DEXAMETHASONE
  5. DOXYCYCLINE [Concomitant]
     Active Substance: DOXYCYCLINE
  6. ELIQUIS [Concomitant]
     Active Substance: APIXABAN
  7. LACTULOSE [Concomitant]
     Active Substance: LACTULOSE
  8. LETROZOLE [Concomitant]
     Active Substance: LETROZOLE
  9. MILK OF MAGNESIA [Concomitant]
     Active Substance: MAGNESIUM HYDROXIDE
  10. NEULASTA [Concomitant]
     Active Substance: PEGFILGRASTIM
  11. OXYCODONE [Concomitant]
     Active Substance: OXYCODONE
  12. PROTONIX [Concomitant]
     Active Substance: PANTOPRAZOLE SODIUM
  13. TRAMADOL [Concomitant]
     Active Substance: TRAMADOL
  14. VITAMIN D [Concomitant]
     Active Substance: VITAMIN D NOS
  15. ZOFRAN [Concomitant]
     Active Substance: ONDANSETRON HYDROCHLORIDE

REACTIONS (1)
  - Hospice care [None]
